FAERS Safety Report 4752785-2 (Version None)
Quarter: 2005Q3

REPORT INFORMATION
  Report Type: 
  Country: None (occurrence: None)
  Receive Date: 20050823
  Receipt Date: 20050114
  Transmission Date: 20060218
  Serious: Yes (Other)
  Sender: FDA-Public Use
  Company Number: 2005015346

PATIENT
  Age: 84 Year
  Sex: Female
  Weight: 47.6277 kg

DRUGS (3)
  1. AMLODIPINE [Suspect]
     Indication: HYPERTENSION
     Dosage: ORAL
     Route: 048
  2. VALDECOXIB [Suspect]
     Indication: ARTHRITIS
     Dosage: ORAL
     Route: 048
     Dates: end: 20040101
  3. HYDROCHLOROTHIAZIDE [Concomitant]

REACTIONS (1)
  - PAIN IN EXTREMITY [None]
